FAERS Safety Report 17986849 (Version 9)
Quarter: 2020Q4

REPORT INFORMATION
  Report Type: Other
  Country: CA (occurrence: CA)
  Receive Date: 20200707
  Receipt Date: 20201006
  Transmission Date: 20210113
  Serious: Yes (Other)
  Sender: FDA-Public Use
  Company Number: CA-ROCHE-2634076

PATIENT
  Sex: Female

DRUGS (3)
  1. OCREVUS [Suspect]
     Active Substance: OCRELIZUMAB
     Indication: PRIMARY PROGRESSIVE MULTIPLE SCLEROSIS
     Dosage: THEN 600 MG EVERY 6 MONTHS?08/JAN/2020, 22/JAN/2020, 23/JUL/2020
     Route: 042
     Dates: start: 20190704
  2. DEXAMETHASONE. [Concomitant]
     Active Substance: DEXAMETHASONE
  3. DILANTIN [Concomitant]
     Active Substance: PHENYTOIN

REACTIONS (5)
  - Illness [Recovered/Resolved]
  - Central nervous system infection [Recovered/Resolved]
  - Seizure [Recovered/Resolved]
  - Brain oedema [Recovered/Resolved]
  - Brain abscess [Recovered/Resolved]
